FAERS Safety Report 16256200 (Version 3)
Quarter: 2019Q2

REPORT INFORMATION
  Report Type: Spontaneous
  Country: JP (occurrence: JP)
  Receive Date: 20190430
  Receipt Date: 20190531
  Transmission Date: 20190711
  Serious: Yes (Hospitalization)
  Sender: FDA-Public Use
  Company Number: JP-ASTRAZENECA-2019SE48917

PATIENT
  Age: 79 Year
  Sex: Male

DRUGS (2)
  1. IMFINZI [Suspect]
     Active Substance: DURVALUMAB
     Indication: NON-SMALL CELL LUNG CANCER
     Route: 041
  2. IMFINZI [Suspect]
     Active Substance: DURVALUMAB
     Indication: NON-SMALL CELL LUNG CANCER
     Route: 041
     Dates: start: 20180906, end: 201904

REACTIONS (3)
  - Rash pruritic [Recovered/Resolved]
  - Cardiac failure [Recovered/Resolved]
  - Radiation pneumonitis [Not Recovered/Not Resolved]

NARRATIVE: CASE EVENT DATE: 20180920
